FAERS Safety Report 15175707 (Version 5)
Quarter: 2020Q2

REPORT INFORMATION
  Report Type: Report from Study
  Country: US (occurrence: US)
  Receive Date: 20180720
  Receipt Date: 20200602
  Transmission Date: 20200713
  Serious: Yes (Death, Hospitalization, Other)
  Sender: FDA-Public Use
  Company Number: US-ACTELION-A-NJ2018-175808

PATIENT
  Age: 71 Year
  Sex: Female
  Weight: 77.1 kg

DRUGS (3)
  1. ADEMPAS [Concomitant]
     Active Substance: RIOCIGUAT
  2. ELIQUIS [Concomitant]
     Active Substance: APIXABAN
  3. OPSUMIT [Suspect]
     Active Substance: MACITENTAN
     Indication: PULMONARY ARTERIAL HYPERTENSION
     Dosage: 10 MG, QD
     Route: 048

REACTIONS (16)
  - Presyncope [Unknown]
  - Platelet count decreased [Unknown]
  - Death [Fatal]
  - Condition aggravated [Unknown]
  - Blood glucose decreased [Unknown]
  - Diastolic hypotension [Unknown]
  - Breath sounds abnormal [Unknown]
  - Pneumonia [Unknown]
  - White blood cell count increased [Unknown]
  - Dyspnoea exertional [Unknown]
  - Influenza [Unknown]
  - Viral infection [Unknown]
  - Dizziness [Unknown]
  - Dyspnoea [Unknown]
  - Malaise [Unknown]
  - Diarrhoea [Unknown]

NARRATIVE: CASE EVENT DATE: 20200322
